FAERS Safety Report 24559482 (Version 4)
Quarter: 2025Q1

REPORT INFORMATION
  Report Type: Spontaneous
  Country: US (occurrence: US)
  Receive Date: 20241029
  Receipt Date: 20250210
  Transmission Date: 20250408
  Serious: Yes (Hospitalization, Other)
  Sender: SANOFI AVENTIS
  Company Number: US-SA-2024SA310023

PATIENT
  Age: 28 Year
  Sex: Male

DRUGS (4)
  1. CEREZYME [Suspect]
     Active Substance: IMIGLUCERASE
     Indication: Gaucher^s disease
     Dosage: 4800 IU, QW
     Route: 042
     Dates: start: 200909
  2. STERILE WATER [Concomitant]
     Active Substance: WATER
  3. SODIUM CHLORIDE [Concomitant]
     Active Substance: SODIUM CHLORIDE
  4. SODIUM CHLORIDE [Concomitant]
     Active Substance: SODIUM CHLORIDE

REACTIONS (6)
  - Mental impairment [Unknown]
  - Respiratory distress [Unknown]
  - Respiratory disorder [Unknown]
  - Infection [Unknown]
  - Haemoptysis [Unknown]
  - Respiratory failure [Unknown]

NARRATIVE: CASE EVENT DATE: 20241021
